FAERS Safety Report 6085981-5 (Version None)
Quarter: 2009Q1

REPORT INFORMATION
  Report Type: 
  Country: None (occurrence: None)
  Receive Date: 20090220
  Receipt Date: 20090123
  Transmission Date: 20090719
  Serious: Yes (Other)
  Sender: FDA-Public Use
  Company Number: US-PFIZER INC-2008153417

PATIENT
  Sex: Female

DRUGS (10)
  1. CELEBREX [Suspect]
     Indication: ARTHRITIS
  2. IBUPROFEN [Suspect]
  3. DRUG, UNSPECIFIED [Suspect]
     Dates: start: 20080707, end: 20080912
  4. STOOL SOFTENER [Concomitant]
  5. MIRALAX [Concomitant]
  6. GABAPENTIN [Concomitant]
  7. ESTROGENS ESTERIFIED [Concomitant]
  8. LEVOTHYROXINE SODIUM [Concomitant]
  9. DIGOXIN [Concomitant]
  10. WARFARIN [Concomitant]

REACTIONS (5)
  - ATRIAL FIBRILLATION [None]
  - BRAIN NEOPLASM [None]
  - OESOPHAGEAL DISORDER [None]
  - SIGHT DISABILITY [None]
  - WEIGHT DECREASED [None]
